FAERS Safety Report 4445292-8 (Version None)
Quarter: 2004Q3

REPORT INFORMATION
  Report Type: 
  Country: None (occurrence: None)
  Receive Date: 20040907
  Receipt Date: 20040823
  Transmission Date: 20050211
  Serious: Yes (Hospitalization)
  Sender: FDA-Public Use
  Company Number: 04P-056-0271518-00

PATIENT
  Age: 45 Year
  Sex: Female

DRUGS (7)
  1. AKINETON [Suspect]
     Dosage: PER ORAL
     Route: 048
     Dates: start: 20040706, end: 20040806
  2. NOCTRAN 10 [Suspect]
     Dosage: PER ORAL
     Route: 048
     Dates: start: 20040706, end: 20040806
  3. PIPAMPERONE [Suspect]
     Dosage: PER ORAL
     Route: 048
     Dates: start: 20040706, end: 20040806
  4. VENLAFAXINE HCL [Suspect]
     Dosage: 37.5 MG, 2 IN 1 D, PER ORAL
     Route: 048
     Dates: start: 20040706, end: 20040806
  5. PAROXETINE HYDROCHLORIDE [Concomitant]
  6. BROMAZEPAM [Concomitant]
  7. ZOLPIDEM TARTRATE [Concomitant]

REACTIONS (2)
  - LEUKOPENIA [None]
  - NEUTROPENIA [None]
